FAERS Safety Report 13775181 (Version 5)
Quarter: 2018Q1

REPORT INFORMATION
  Report Type: Report from Study
  Country: US (occurrence: US)
  Receive Date: 20170720
  Receipt Date: 20180118
  Transmission Date: 20180508
  Serious: Yes (Hospitalization)
  Sender: FDA-Public Use
  Company Number: US-BAYER-2017-056500

PATIENT
  Age: 80 Year
  Sex: Female
  Weight: 66.67 kg

DRUGS (5)
  1. ADEMPAS [Suspect]
     Active Substance: RIOCIGUAT
     Indication: PULMONARY HYPERTENSION
     Dosage: 1 MG, TID
     Route: 048
  2. AMLODIPINE [Concomitant]
     Active Substance: AMLODIPINE BESYLATE
     Dosage: UNK
  3. ADEMPAS [Suspect]
     Active Substance: RIOCIGUAT
     Indication: PULMONARY HYPERTENSION
     Dosage: 1.5 MG, TID
     Route: 048
  4. ADEMPAS [Suspect]
     Active Substance: RIOCIGUAT
     Indication: PULMONARY HYPERTENSION
     Dosage: UNK
     Dates: start: 20170209
  5. ADEMPAS [Suspect]
     Active Substance: RIOCIGUAT
     Indication: PULMONARY HYPERTENSION
     Dosage: 1.5 MG, TID
     Route: 048
     Dates: start: 20171116

REACTIONS (18)
  - Fall [Unknown]
  - Fluid retention [Unknown]
  - Oedema peripheral [Unknown]
  - Gallbladder disorder [None]
  - Dizziness [Unknown]
  - Balance disorder [Unknown]
  - Eating disorder [None]
  - Dyspnoea [Not Recovered/Not Resolved]
  - Abdominal pain [Unknown]
  - Blood glucose increased [Unknown]
  - Back pain [Unknown]
  - Intentional product use issue [None]
  - Peripheral swelling [Unknown]
  - Joint swelling [Not Recovered/Not Resolved]
  - Feeling abnormal [None]
  - Dyspepsia [Unknown]
  - Oedema [Unknown]
  - Tooth extraction [None]

NARRATIVE: CASE EVENT DATE: 201704
